FAERS Safety Report 25863690 (Version 1)
Quarter: 2025Q3

REPORT INFORMATION
  Report Type: Spontaneous
  Country: TW (occurrence: TW)
  Receive Date: 20250930
  Receipt Date: 20250930
  Transmission Date: 20251020
  Serious: Yes (Other)
  Sender: MYLAN
  Company Number: TW-MYLANLABS-2025M1082400

PATIENT
  Age: 92 Year
  Sex: Female

DRUGS (2)
  1. NORVASC [Suspect]
     Active Substance: AMLODIPINE BESYLATE
     Indication: Hypertension
     Dosage: 5 MILLIGRAM, QD
     Dates: start: 20200803, end: 20240826
  2. Busix [Concomitant]
     Dosage: 1 MILLIGRAM, QD
     Dates: start: 20240701

REACTIONS (2)
  - Oedema peripheral [Recovered/Resolved]
  - Blood pressure increased [Unknown]

NARRATIVE: CASE EVENT DATE: 20240701
